FAERS Safety Report 15746059 (Version 1)
Quarter: 2018Q4

REPORT INFORMATION
  Report Type: Spontaneous
  Country: NO (occurrence: NO)
  Receive Date: 20181220
  Receipt Date: 20181220
  Transmission Date: 20190205
  Serious: Yes (Other)
  Sender: FDA-Public Use
  Company Number: NO-PFIZER INC-2018519598

PATIENT
  Age: 73 Year
  Sex: Female
  Weight: 70 kg

DRUGS (16)
  1. CIPRALEX [Concomitant]
     Active Substance: ESCITALOPRAM OXALATE
     Dosage: 10 MG, 1X/DAY
     Route: 048
  2. SIMVASTATIN SANDOZ [Concomitant]
     Active Substance: SIMVASTATIN
     Indication: CEREBROVASCULAR ACCIDENT
     Dosage: 20 MG, UNK
     Route: 048
  3. SPIRIVA [Concomitant]
     Active Substance: TIOTROPIUM BROMIDE MONOHYDRATE
     Indication: CHRONIC OBSTRUCTIVE PULMONARY DISEASE
     Dosage: 18 UG, 1X/DAY
  4. CYKLOKAPRON [Suspect]
     Active Substance: TRANEXAMIC ACID
     Indication: HIP ARTHROPLASTY
     Dosage: 3 G, UNK (2 G BEFORE OPERATION + 1 G 4 HOURS LATER)
     Route: 042
     Dates: start: 20181115, end: 20181115
  5. LETROZOL ACCORD [Concomitant]
     Active Substance: LETROZOLE
     Dosage: 2.5 MG, 1X/DAY
  6. NOVOMIX [Concomitant]
     Active Substance: INSULIN ASPART
     Indication: INSULIN-REQUIRING TYPE 2 DIABETES MELLITUS
     Dosage: 20 IU, 1X/DAY
  7. NOVORAPID [Concomitant]
     Active Substance: INSULIN ASPART
     Indication: INSULIN-REQUIRING TYPE 2 DIABETES MELLITUS
     Dosage: UNK
  8. ONBREZ BREEZHALER [Concomitant]
     Active Substance: INDACATEROL
     Indication: CHRONIC OBSTRUCTIVE PULMONARY DISEASE
     Dosage: 150 UG, 1X/DAY
  9. XARELTO [Concomitant]
     Active Substance: RIVAROXABAN
     Indication: ATRIAL FIBRILLATION
     Dosage: 20 MG, 1X/DAY
  10. CALOGEN [Concomitant]
     Indication: NUTRITIONAL SUPPLEMENTATION
     Dosage: 30 ML, UNK
  11. PREDNISOLON [Concomitant]
     Active Substance: PREDNISOLONE
     Indication: CHRONIC OBSTRUCTIVE PULMONARY DISEASE
     Dosage: 5 MG, 1X/DAY
     Route: 048
  12. DUROFERON [Concomitant]
     Active Substance: FERROUS SULFATE
     Dosage: 100 MG, 1X/DAY
     Route: 048
  13. METFORMIN ORIFARM [Concomitant]
     Indication: INSULIN-REQUIRING TYPE 2 DIABETES MELLITUS
     Dosage: 500 MG, 2X/DAY
     Route: 048
  14. BURINEX [Concomitant]
     Active Substance: BUMETANIDE
     Dosage: 0.5 MG, 1X/DAY
     Route: 048
  15. BRONKYL [Concomitant]
     Indication: INCREASED UPPER AIRWAY SECRETION
     Dosage: 200 MG, 1X/DAY
  16. SOMAC [Concomitant]
     Active Substance: PANTOPRAZOLE SODIUM
     Dosage: UNK

REACTIONS (1)
  - Generalised tonic-clonic seizure [Recovered/Resolved]

NARRATIVE: CASE EVENT DATE: 20181115
